FAERS Safety Report 8546956-7 (Version None)
Quarter: 2012Q3

REPORT INFORMATION
  Report Type: 
  Country: None (occurrence: None)
  Receive Date: 20120727
  Receipt Date: 20120719
  Transmission Date: 20120928
  Serious: Yes (Other)
  Sender: FDA-Public Use
  Company Number: US-ASTRAZENECA-2012SE51296

PATIENT
  Age: 49 Year
  Sex: Female

DRUGS (3)
  1. SYMBICORT [Suspect]
     Dosage: UNKNOWN
     Route: 055
  2. NEXIUM [Suspect]
     Route: 048
  3. RHINOCORT [Suspect]
     Route: 045

REACTIONS (1)
  - NEOPLASM MALIGNANT [None]
